FAERS Safety Report 24962238 (Version 1)
Quarter: 2025Q1

REPORT INFORMATION
  Report Type: Spontaneous
  Country: US (occurrence: US)
  Receive Date: 20250212
  Receipt Date: 20250212
  Transmission Date: 20250408
  Serious: No
  Sender: PFIZER
  Company Number: US-PFIZER INC-202400331349

PATIENT
  Age: 88 Year
  Sex: Female
  Weight: 47.2 kg

DRUGS (2)
  1. BRAFTOVI [Suspect]
     Active Substance: ENCORAFENIB
     Indication: Lung neoplasm malignant
     Dosage: 225 MG, 1X/DAY (TAKE 3 CAPSULES (75 MG) DAILY)
     Route: 048
     Dates: start: 20241005
  2. MEKTOVI [Suspect]
     Active Substance: BINIMETINIB
     Indication: Lung neoplasm malignant
     Dosage: 30 MG, 2X/DAY (TAKE 2 (15 MG) TABLETS BY MOUTH TWICE DAILY)
     Route: 048
     Dates: start: 20241005

REACTIONS (2)
  - Nausea [Recovering/Resolving]
  - Diarrhoea [Recovering/Resolving]
